FAERS Safety Report 4971814-4 (Version None)
Quarter: 2006Q2

REPORT INFORMATION
  Report Type: 
  Country: None (occurrence: None)
  Receive Date: 20060412
  Receipt Date: 20060412
  Transmission Date: 20061013
  Serious: Yes (Life-Threatening, Hospitalization)
  Sender: FDA-Public Use
  Company Number: None

PATIENT
  Age: 78 Year
  Sex: Male

DRUGS (1)
  1. DIGITEK  0.25MG [Suspect]
     Dosage: 1 PO QD
     Route: 048
     Dates: start: 20040601

REACTIONS (2)
  - ATRIAL FIBRILLATION [None]
  - DRUG LEVEL DECREASED [None]
